FAERS Safety Report 14528551 (Version 5)
Quarter: 2018Q2

REPORT INFORMATION
  Report Type: Report from Study
  Country: CN (occurrence: CN)
  Receive Date: 20180214
  Receipt Date: 20180406
  Transmission Date: 20180711
  Serious: Yes (Life-Threatening, Hospitalization)
  Sender: FDA-Public Use
  Company Number: CN-ROCHE-2065755

PATIENT
  Age: 58 Year
  Sex: Female
  Weight: 58 kg

DRUGS (67)
  1. DOXORUBICIN [Suspect]
     Active Substance: DOXORUBICIN
     Indication: DIFFUSE LARGE B-CELL LYMPHOMA
     Dosage: LAST DOSE TAKEN ON 22/APR/2014 AT A DOSE OF 79.52 MG.
     Route: 042
     Dates: start: 20140103
  2. ESOMEPRAZOLE MAGNESIUM. [Concomitant]
     Active Substance: ESOMEPRAZOLE MAGNESIUM
     Dosage: TO: PROTECT GASTRIC MUCOSA
     Route: 065
     Dates: start: 20140126
  3. RABEPRAZOLE SODIUM. [Concomitant]
     Active Substance: RABEPRAZOLE SODIUM
     Dosage: TO: PROTECT GASTRIC MUCOSA
     Route: 065
     Dates: start: 20140513
  4. PROMETHAZINE HYDROCHLORIDE. [Concomitant]
     Active Substance: PROMETHAZINE HYDROCHLORIDE
     Route: 065
     Dates: start: 20140102, end: 20140102
  5. PROMETHAZINE HYDROCHLORIDE. [Concomitant]
     Active Substance: PROMETHAZINE HYDROCHLORIDE
     Route: 065
     Dates: start: 20140126, end: 20140126
  6. PROMETHAZINE HYDROCHLORIDE. [Concomitant]
     Active Substance: PROMETHAZINE HYDROCHLORIDE
     Route: 065
     Dates: start: 20140218, end: 20140218
  7. ZOLPIDEM TARTRATE. [Concomitant]
     Active Substance: ZOLPIDEM TARTRATE
     Route: 065
     Dates: start: 20140418
  8. SARIDON (CHINA) [Concomitant]
     Indication: PROPHYLAXIS
     Route: 065
     Dates: start: 20140624, end: 20140624
  9. MANNITOL. [Concomitant]
     Active Substance: MANNITOL
     Indication: DEHYDRATION
     Route: 065
     Dates: start: 20140528, end: 20140528
  10. ESTAZOLAM. [Concomitant]
     Active Substance: ESTAZOLAM
     Route: 065
     Dates: start: 20140624, end: 20140624
  11. ESTAZOLAM. [Concomitant]
     Active Substance: ESTAZOLAM
     Route: 065
     Dates: start: 20140512, end: 20140624
  12. COMPOUND PARACETAMOL [Concomitant]
     Route: 065
     Dates: start: 20140331, end: 20140331
  13. PROMETHAZINE HYDROCHLORIDE. [Concomitant]
     Active Substance: PROMETHAZINE HYDROCHLORIDE
     Indication: SEDATION
     Route: 065
     Dates: start: 20140512, end: 20140512
  14. PALONOSETRON HYDROCHLORIDE. [Concomitant]
     Active Substance: PALONOSETRON HYDROCHLORIDE
     Dosage: AS: ANTEMETIC
     Route: 065
     Dates: start: 20140219, end: 20140219
  15. FILGRASTIM [Concomitant]
     Active Substance: FILGRASTIM
     Route: 065
     Dates: start: 20140128, end: 20140128
  16. ENTECAVIR. [Concomitant]
     Active Substance: ENTECAVIR
     Route: 065
     Dates: start: 20140331
  17. AMBROXOL HYDROCHLORIDE [Concomitant]
     Active Substance: AMBROXOL HYDROCHLORIDE
     Indication: PRODUCTIVE COUGH
     Dosage: TO REDUCE PHLEGM
     Route: 065
     Dates: start: 20140114, end: 20140124
  18. AMBROXOL HYDROCHLORIDE [Concomitant]
     Active Substance: AMBROXOL HYDROCHLORIDE
     Route: 065
     Dates: start: 20140526, end: 20140527
  19. COMPOUND GLYCYRRHIZA ORAL SOLUTION (AMMONIA/GLYCEROL/GUAIFENESIN/LICOR [Concomitant]
     Indication: COUGH
     Route: 048
     Dates: start: 20131231
  20. CYCLOPHOSPHAMIDE. [Suspect]
     Active Substance: CYCLOPHOSPHAMIDE
     Indication: DIFFUSE LARGE B-CELL LYMPHOMA
     Dosage: LAST DOSE TAKEN ON 22/APR/2014 AT A DOSE OF 1192.80 MG.
     Route: 042
     Dates: start: 20140103
  21. PREDNISONE. [Suspect]
     Active Substance: PREDNISONE
     Indication: DIFFUSE LARGE B-CELL LYMPHOMA
     Dosage: 100 MG DAILY FOR 5 DAYS IN A 3 WEEK CYCLE?LAST DOSE TAKEN ON 26/APR/2014 AT A DOSE OF 100 MG
     Route: 048
     Dates: start: 20140103
  22. ESOMEPRAZOLE MAGNESIUM. [Concomitant]
     Active Substance: ESOMEPRAZOLE MAGNESIUM
     Dosage: TO: PROTECT GASTRIC MUCOSA
     Route: 065
     Dates: start: 20140422
  23. ZOLPIDEM [Concomitant]
     Active Substance: ZOLPIDEM\ZOLPIDEM TARTRATE
     Indication: INSOMNIA
     Route: 065
     Dates: start: 20140217
  24. COMPOUND PARACETAMOL [Concomitant]
     Indication: PAIN
     Route: 065
     Dates: start: 20140512, end: 20140512
  25. PROMETHAZINE HYDROCHLORIDE. [Concomitant]
     Active Substance: PROMETHAZINE HYDROCHLORIDE
     Route: 065
     Dates: start: 20140421, end: 20140421
  26. INDOMETACIN [Concomitant]
     Active Substance: INDOMETHACIN
     Indication: PROPHYLAXIS
     Route: 065
     Dates: start: 20140103, end: 20140103
  27. INDOMETACIN [Concomitant]
     Active Substance: INDOMETHACIN
     Route: 065
     Dates: start: 20140115, end: 20140115
  28. FILGRASTIM [Concomitant]
     Active Substance: FILGRASTIM
     Route: 065
     Dates: start: 20140422, end: 20140422
  29. ENTECAVIR. [Concomitant]
     Active Substance: ENTECAVIR
     Indication: HEPATITIS B
     Route: 065
     Dates: start: 20140303, end: 20150610
  30. PROMETHAZINE [Concomitant]
     Active Substance: PROMETHAZINE\PROMETHAZINE HYDROCHLORIDE
     Indication: PROPHYLAXIS
     Route: 065
     Dates: start: 20140603, end: 20140603
  31. DUPHALAC (CHINA) [Concomitant]
     Route: 065
     Dates: start: 20140101
  32. CEFACLOR. [Concomitant]
     Active Substance: CEFACLOR
     Indication: NEUTROPENIA
     Route: 065
     Dates: start: 20140114
  33. COMPOUND GLYCYRRHIZA ORAL SOLUTION (AMMONIA/GLYCEROL/GUAIFENESIN/LICOR [Concomitant]
     Route: 048
     Dates: start: 20131204
  34. GLYCYRRHIZA [Concomitant]
     Active Substance: LICORICE
     Indication: COUGH
     Route: 065
     Dates: start: 20131204
  35. COMPOUND PARACETAMOL [Concomitant]
     Route: 065
     Dates: start: 20140525, end: 20140525
  36. PROMETHAZINE HYDROCHLORIDE. [Concomitant]
     Active Substance: PROMETHAZINE HYDROCHLORIDE
     Route: 065
     Dates: start: 20140109, end: 20140109
  37. PALONOSETRON HYDROCHLORIDE. [Concomitant]
     Active Substance: PALONOSETRON HYDROCHLORIDE
     Dosage: AS: ANTEMETIC
     Route: 065
     Dates: start: 20140513, end: 20140513
  38. PALONOSETRON HYDROCHLORIDE. [Concomitant]
     Active Substance: PALONOSETRON HYDROCHLORIDE
     Dosage: AS: ANTEMETIC
     Route: 065
     Dates: start: 20140103, end: 20140103
  39. VINCRISTINE [Suspect]
     Active Substance: VINCRISTINE
     Indication: DIFFUSE LARGE B-CELL LYMPHOMA
     Dosage: LAST DOSE TAKEN ON 22/APR/2014 AT A DOSE OF 2.23 MG.
     Route: 050
     Dates: start: 20140103
  40. ESOMEPRAZOLE MAGNESIUM. [Concomitant]
     Active Substance: ESOMEPRAZOLE MAGNESIUM
     Dosage: TO: PROTECT GASTRIC MUCOSA
     Route: 065
     Dates: start: 20140102
  41. ESOMEPRAZOLE MAGNESIUM. [Concomitant]
     Active Substance: ESOMEPRAZOLE MAGNESIUM
     Dosage: TO: PROTECT GASTRIC MUCOSA
     Route: 065
     Dates: start: 20140219
  42. COMPOUND PARACETAMOL [Concomitant]
     Route: 065
     Dates: start: 20140218, end: 20140218
  43. PROMETHAZINE HYDROCHLORIDE. [Concomitant]
     Active Substance: PROMETHAZINE HYDROCHLORIDE
     Route: 065
     Dates: start: 20140331, end: 20140331
  44. FILGRASTIM [Concomitant]
     Active Substance: FILGRASTIM
     Indication: WHITE BLOOD CELL COUNT INCREASED
     Route: 065
     Dates: start: 20140513
  45. SARIDON (CHINA) [Concomitant]
     Indication: PYREXIA
     Route: 065
     Dates: start: 20140603, end: 20140603
  46. DEXAMETHASONE SODIUM PHOSPHATE. [Concomitant]
     Active Substance: DEXAMETHASONE SODIUM PHOSPHATE
     Indication: DEHYDRATION
     Route: 065
     Dates: start: 20140528, end: 20140528
  47. GLYCERINE [Concomitant]
     Active Substance: GLYCERIN
     Route: 065
     Dates: start: 20140101
  48. INDOMETACIN [Concomitant]
     Active Substance: INDOMETHACIN
     Route: 065
     Dates: start: 20140526, end: 20140526
  49. CEFACLOR. [Concomitant]
     Active Substance: CEFACLOR
     Route: 065
     Dates: start: 20140430, end: 20140430
  50. CEFACLOR. [Concomitant]
     Active Substance: CEFACLOR
     Route: 065
     Dates: start: 20140519
  51. TYLOX (CHINA) [Concomitant]
     Route: 065
     Dates: start: 20140527
  52. OBINUTUZUMAB. [Suspect]
     Active Substance: OBINUTUZUMAB
     Indication: DIFFUSE LARGE B-CELL LYMPHOMA
     Dosage: VOLUME OF LAST DOSE TAKEN 40 ML AT A DOSE CONCENTRATION OF 4 MG/ML ON: 21/APR/2014
     Route: 042
     Dates: start: 20140102
  53. ESTAZOLAM. [Concomitant]
     Active Substance: ESTAZOLAM
     Indication: INSOMNIA
     Route: 065
     Dates: start: 20131230
  54. ESTAZOLAM. [Concomitant]
     Active Substance: ESTAZOLAM
     Route: 065
     Dates: start: 20140226
  55. ESOMEPRAZOLE MAGNESIUM. [Concomitant]
     Active Substance: ESOMEPRAZOLE MAGNESIUM
     Dosage: TO: PROTECT GASTRIC MUCOSA
     Route: 065
     Dates: start: 20140512
  56. COMPOUND PARACETAMOL [Concomitant]
     Indication: PROPHYLAXIS
     Route: 065
     Dates: start: 20140102, end: 20140102
  57. COMPOUND PARACETAMOL [Concomitant]
     Route: 065
     Dates: start: 20140109, end: 20140109
  58. PALONOSETRON HYDROCHLORIDE. [Concomitant]
     Active Substance: PALONOSETRON HYDROCHLORIDE
     Dosage: AS: ANTEMETIC
     Route: 065
     Dates: start: 20140401, end: 20140401
  59. PALONOSETRON HYDROCHLORIDE. [Concomitant]
     Active Substance: PALONOSETRON HYDROCHLORIDE
     Dosage: AS: ANTEMETIC
     Route: 065
     Dates: start: 20140422, end: 20140422
  60. FILGRASTIM [Concomitant]
     Active Substance: FILGRASTIM
     Route: 065
     Dates: start: 20140110, end: 20140116
  61. ENTECAVIR. [Concomitant]
     Active Substance: ENTECAVIR
     Route: 065
     Dates: start: 20140304, end: 201506
  62. DEXAMETHASONE SODIUM PHOSPHATE. [Concomitant]
     Active Substance: DEXAMETHASONE SODIUM PHOSPHATE
     Indication: LOCALISED OEDEMA
  63. BUCINNAZINE HYDROCHLORIDE [Concomitant]
     Route: 065
     Dates: start: 20140527, end: 20140527
  64. ESOMEPRAZOLE MAGNESIUM. [Concomitant]
     Active Substance: ESOMEPRAZOLE MAGNESIUM
     Dosage: TO: PROTECT GASTRIC MUCOSA
     Route: 065
     Dates: start: 20140219
  65. COMPOUND PARACETAMOL [Concomitant]
     Route: 065
     Dates: start: 20140126, end: 20140126
  66. ZOLPIDEM TARTRATE. [Concomitant]
     Active Substance: ZOLPIDEM TARTRATE
     Indication: INSOMNIA
     Route: 065
     Dates: start: 20140328
  67. MANNITOL. [Concomitant]
     Active Substance: MANNITOL
     Indication: LOCALISED OEDEMA

REACTIONS (2)
  - Febrile neutropenia [Recovered/Resolved]
  - Compression fracture [Recovered/Resolved]

NARRATIVE: CASE EVENT DATE: 20140522
